FAERS Safety Report 4647569-X (Version None)
Quarter: 2005Q2

REPORT INFORMATION
  Report Type: 
  Country: None (occurrence: None)
  Receive Date: 20050426
  Receipt Date: 20050415
  Transmission Date: 20051028
  Serious: Yes (Hospitalization)
  Sender: FDA-Public Use
  Company Number: 2005061178

PATIENT
  Age: 69 Year
  Sex: Male
  Weight: 100 kg

DRUGS (9)
  1. LIPITOR [Suspect]
     Indication: HYPERLIPIDAEMIA
     Dosage: 10 MG (10 MG, 1 IN 1 D), ORAL
     Route: 048
     Dates: start: 19990803, end: 19990810
  2. COLCHICINE (COCHICINE) [Suspect]
     Indication: GOUT
     Dosage: 2 MG (2 MG, 1 IN 1 D), ORAL
     Route: 048
     Dates: start: 19990803, end: 19990809
  3. ENALAPRIL MALEATE [Concomitant]
  4. NIFEDIPINE [Concomitant]
  5. SIMVASTATIN [Concomitant]
  6. FLUCLOXACILLIN (FLUCOXACILLIN) [Concomitant]
  7. BENZYLPENICILLIN (BENZYLPENICILLIN) [Concomitant]
  8. HEPARIN [Concomitant]
  9. ACETAMINOPHEN [Concomitant]

REACTIONS (3)
  - LEUKOPENIA [None]
  - LIVER FUNCTION TEST ABNORMAL [None]
  - NEUTROPENIA [None]
